FAERS Safety Report 9645344 (Version 4)
Quarter: 2016Q1

REPORT INFORMATION
  Report Type: Report from Study
  Country: CA (occurrence: CA)
  Receive Date: 20131025
  Receipt Date: 20160216
  Transmission Date: 20160526
  Serious: Yes (Hospitalization)
  Sender: FDA-Public Use
  Company Number: CA-JNJFOC-20131013653

PATIENT
  Sex: Female
  Weight: 80 kg

DRUGS (7)
  1. ALENDRONATE [Concomitant]
     Active Substance: ALENDRONATE SODIUM
     Route: 065
  2. CALCIUM [Concomitant]
     Active Substance: CALCIUM
     Route: 065
  3. NAPROXEN. [Concomitant]
     Active Substance: NAPROXEN
     Dosage: AS NECESSARY
     Route: 065
  4. APO-METOPROLOL [Concomitant]
     Active Substance: METOPROLOL
     Route: 065
  5. SYNTHROID [Concomitant]
     Active Substance: LEVOTHYROXINE SODIUM
     Dosage: DOSAGE: ^-113 MG^
     Route: 065
  6. REMICADE [Suspect]
     Active Substance: INFLIXIMAB
     Indication: RHEUMATOID ARTHRITIS
     Dosage: 0,2,6 AND EVERY 8 WEEKS
     Route: 042
     Dates: start: 20070301
  7. COUMADIN [Concomitant]
     Active Substance: WARFARIN SODIUM
     Dosage: DOSES TO BE ADJUSTED BASED ON INTERNAL NORMALIZED RATIO (INR)
     Route: 065

REACTIONS (1)
  - Atrial fibrillation [Recovered/Resolved]
